FAERS Safety Report 13407088 (Version 5)
Quarter: 2017Q3

REPORT INFORMATION
  Report Type: Report from Study
  Country: CO (occurrence: CO)
  Receive Date: 20170405
  Receipt Date: 20170922
  Transmission Date: 20171127
  Serious: Yes (Hospitalization)
  Sender: FDA-Public Use
  Company Number: PHHY2016CO090674

PATIENT
  Age: 53 Year
  Sex: Female
  Weight: 74 kg

DRUGS (8)
  1. SANDOSTATIN LAR DEPOT [Suspect]
     Active Substance: OCTREOTIDE ACETATE
     Indication: ACROMEGALY
     Dosage: 60 MG, QMO (2 AMPOULES OF 30 MG OF SANDOSTATIN)
     Route: 030
  2. SANDOSTATIN LAR DEPOT [Suspect]
     Active Substance: OCTREOTIDE ACETATE
     Dosage: 60 MG, QMO (2 AMPOULES OF 30 MG OF SANDOSTATIN)
     Route: 030
     Dates: start: 201703
  3. SANDOSTATIN LAR DEPOT [Suspect]
     Active Substance: OCTREOTIDE ACETATE
     Indication: NEUROENDOCRINE TUMOUR
     Dosage: 30 MG, QMO (MONTHLY)
     Route: 030
     Dates: start: 20100301
  4. SANDOSTATIN LAR DEPOT [Suspect]
     Active Substance: OCTREOTIDE ACETATE
     Dosage: 30 MG, QMO
     Route: 030
  5. SOMATULINE [Concomitant]
     Active Substance: LANREOTIDE ACETATE
     Indication: PRODUCT USED FOR UNKNOWN INDICATION
     Dosage: 120 MG, QMO
     Route: 030
  6. TRAZODONE [Concomitant]
     Active Substance: TRAZODONE HYDROCHLORIDE
     Indication: SLEEP DISORDER
     Dosage: 100 MG, UNK
     Route: 065
  7. MELOXICAM. [Concomitant]
     Active Substance: MELOXICAM
     Indication: PRODUCT USED FOR UNKNOWN INDICATION
     Dosage: UNK
     Route: 065
  8. SERTRALINE [Suspect]
     Active Substance: SERTRALINE HYDROCHLORIDE
     Indication: SLEEP DISORDER
     Dosage: 100 MG, UNK
     Route: 065

REACTIONS (15)
  - Apnoea [Unknown]
  - Amnesia [Unknown]
  - Cardiomegaly [Unknown]
  - Incorrect dose administered [Unknown]
  - Vomiting [Unknown]
  - Arteriosclerosis [Unknown]
  - Diarrhoea [Unknown]
  - Dizziness [Unknown]
  - Sleep apnoea syndrome [Unknown]
  - Vital functions abnormal [Unknown]
  - Osteoarthritis [Unknown]
  - Headache [Unknown]
  - Hyperglycaemia [Recovered/Resolved]
  - Headache [Recovered/Resolved]
  - Limb discomfort [Unknown]

NARRATIVE: CASE EVENT DATE: 20170320
